FAERS Safety Report 12378835 (Version 13)
Quarter: 2017Q2

REPORT INFORMATION
  Report Type: Report from Study
  Country: US (occurrence: US)
  Receive Date: 20160517
  Receipt Date: 20170413
  Transmission Date: 20170830
  Serious: Yes (Death, Hospitalization)
  Sender: FDA-Public Use
  Company Number: US-ACTELION-A-NJ2016-131719

PATIENT
  Age: 59 Year
  Sex: Female

DRUGS (6)
  1. TYVASO [Concomitant]
     Active Substance: TREPROSTINIL
  2. ADCIRCA [Concomitant]
     Active Substance: TADALAFIL
  3. ORENITRAM [Concomitant]
     Active Substance: TREPROSTINIL
  4. TRACLEER [Suspect]
     Active Substance: BOSENTAN
     Indication: PULMONARY HYPERTENSION
     Dosage: 125 MG, BID
     Route: 048
     Dates: start: 2005, end: 20170308
  5. RANEXA [Concomitant]
     Active Substance: RANOLAZINE
     Dosage: 500 MG, BID
     Dates: start: 2012
  6. DILTIAZEM. [Concomitant]
     Active Substance: DILTIAZEM

REACTIONS (19)
  - Respiratory distress [Unknown]
  - Influenza [Unknown]
  - Wheezing [Unknown]
  - Dyspnoea [Unknown]
  - Influenza like illness [Unknown]
  - Pneumothorax spontaneous [Unknown]
  - Multiple allergies [Unknown]
  - Bronchiectasis [Unknown]
  - Lower respiratory tract congestion [Unknown]
  - Pulseless electrical activity [Fatal]
  - Cardiac failure [Fatal]
  - Pneumonia pseudomonal [Unknown]
  - Hypertension [Unknown]
  - Fluid retention [Unknown]
  - Cough [Unknown]
  - Diarrhoea [Unknown]
  - Lung infection [Unknown]
  - Infection [Unknown]
  - Dyspnoea exertional [Unknown]
